FAERS Safety Report 5061703-1 (Version None)
Quarter: 2006Q3

REPORT INFORMATION
  Report Type: 
  Country: None (occurrence: None)
  Receive Date: 20060720
  Receipt Date: 20060606
  Transmission Date: 20061208
  Serious: Yes (Hospitalization)
  Sender: FDA-Public Use
  Company Number: 6023292

PATIENT
  Age: 68 Year
  Sex: Female

DRUGS (4)
  1. NAPROXEN [Suspect]
     Indication: OSTEOARTHRITIS
     Dosage: OVERDOSE 1,5 ORAL - 2,0G X 4 TAKEN (500 MG, 2 IN 1 D)
     Route: 048
  2. HYDROCHLOROTHIAZIDE [Suspect]
     Indication: HYPERTENSION
     Dosage: 25,000 MG (25 MG, 1 IN 1 D) ORAL
     Route: 048
  3. PROMETHAZINE (SUPPOSITORY) (PROMETHAZINE) [Concomitant]
  4. METHYLSULFONYLMETHANE (METHYLSULFONYLMETHANE) [Concomitant]

REACTIONS (19)
  - BLOOD PRESSURE SYSTOLIC INCREASED [None]
  - BODY TEMPERATURE INCREASED [None]
  - CARDIAC FAILURE CONGESTIVE [None]
  - CHOLELITHIASIS [None]
  - DRUG PRESCRIBING ERROR [None]
  - FLUID OVERLOAD [None]
  - GASTROINTESTINAL DISORDER [None]
  - HAEMODIALYSIS [None]
  - HEPATIC FAILURE [None]
  - INTERNATIONAL NORMALISED RATIO INCREASED [None]
  - MEDICATION ERROR [None]
  - NAUSEA [None]
  - OVERDOSE [None]
  - RENAL DISORDER [None]
  - RENAL FAILURE [None]
  - RESPIRATORY RATE INCREASED [None]
  - TORSADE DE POINTES [None]
  - URINARY TRACT INFECTION [None]
  - VOMITING [None]
